FAERS Safety Report 4775533-9 (Version None)
Quarter: 2005Q3

REPORT INFORMATION
  Report Type: 
  Country: None (occurrence: None)
  Receive Date: 20050922
  Receipt Date: 20050913
  Transmission Date: 20060218
  Serious: Yes (Other)
  Sender: FDA-Public Use
  Company Number: FR-JNJFOC-20040603859

PATIENT
  Age: 28 Year
  Sex: Male
  Weight: 65 kg

DRUGS (1)
  1. REMICADE [Suspect]
     Indication: ANKYLOSING SPONDYLITIS
     Dosage: 3 INFUSIONS
     Route: 042

REACTIONS (5)
  - CHOROID MELANOMA [None]
  - CHOROID NEOPLASM [None]
  - FUNGAL INFECTION [None]
  - RETINAL VEIN OCCLUSION [None]
  - TUBERCULOSIS [None]
